FAERS Safety Report 8216872 (Version 2)
Quarter: 2013Q2

REPORT INFORMATION
  Report Type: Spontaneous
  Country: US (occurrence: US)
  Receive Date: 20111101
  Receipt Date: 20130404
  Transmission Date: 20140414
  Serious: No
  Sender: FDA-Public Use
  Company Number: US-BIOGENIDEC-2011BI040593

PATIENT
  Age: 46 Year
  Sex: Female

DRUGS (4)
  1. AVONEX [Suspect]
     Indication: MULTIPLE SCLEROSIS
     Route: 030
     Dates: start: 20110204, end: 20120222
  2. SLEEPING PILLS (NOS) [Concomitant]
     Indication: INSOMNIA
     Dates: start: 2006
  3. STEROID CREAM (NOS) [Concomitant]
     Indication: PREMEDICATION
     Dates: start: 201105
  4. 8 HOUR TYLENOL [Concomitant]
     Indication: PREMEDICATION
     Dates: start: 201105

REACTIONS (5)
  - Migraine [Recovered/Resolved]
  - Gait disturbance [Not Recovered/Not Resolved]
  - Influenza like illness [Recovered/Resolved with Sequelae]
  - Injection site bruising [Not Recovered/Not Resolved]
  - Multiple sclerosis relapse [Unknown]
